FAERS Safety Report 9831998 (Version 5)
Quarter: 2014Q1

REPORT INFORMATION
  Report Type: Report from Study
  Country: US (occurrence: US)
  Receive Date: 20140121
  Receipt Date: 20140321
  Transmission Date: 20141002
  Serious: No
  Sender: FDA-Public Use
  Company Number: US-VERTEX PHARMACEUTICALS INC-2014-000258

PATIENT
  Age: 33 Year
  Sex: Female
  Weight: 91 kg

DRUGS (5)
  1. VX-950 (TELAPREVIR) [Suspect]
     Indication: HEPATITIS C
     Dosage: 2 DF, TID
     Route: 048
     Dates: start: 20140111
  2. VX-950 (TELAPREVIR) [Suspect]
     Dosage: 3 DF, BID
     Route: 048
     Dates: start: 20140310
  3. RIBAVIRIN [Suspect]
     Indication: HEPATITIS C
     Dosage: 3 DF, BID
     Dates: start: 20140111
  4. PEGASYS [Suspect]
     Indication: HEPATITIS C
     Dosage: 180 ?G, QW
     Route: 058
     Dates: start: 20140110
  5. VITAMIN B COMPLEX [Concomitant]
     Indication: VITAMIN SUPPLEMENTATION

REACTIONS (27)
  - Inappropriate schedule of drug administration [Recovered/Resolved]
  - Drug dose omission [Unknown]
  - Increased upper airway secretion [Recovered/Resolved]
  - Immune system disorder [Not Recovered/Not Resolved]
  - Dizziness [Recovered/Resolved]
  - Weight fluctuation [Not Recovered/Not Resolved]
  - Weight increased [Not Recovered/Not Resolved]
  - Perineal pain [Recovering/Resolving]
  - Bone pain [Recovering/Resolving]
  - Arthralgia [Recovering/Resolving]
  - Skin odour abnormal [Not Recovered/Not Resolved]
  - Ocular hyperaemia [Recovered/Resolved]
  - Pain [Recovering/Resolving]
  - Crying [Recovered/Resolved]
  - Injection site erythema [Recovering/Resolving]
  - Injection site bruising [Recovered/Resolved]
  - Injection site rash [Recovered/Resolved]
  - Abdominal discomfort [Not Recovered/Not Resolved]
  - Alopecia [Not Recovered/Not Resolved]
  - Red blood cell count decreased [Not Recovered/Not Resolved]
  - Dry skin [Not Recovered/Not Resolved]
  - Erythema [Recovered/Resolved]
  - Proctalgia [Recovering/Resolving]
  - Pruritus [Not Recovered/Not Resolved]
  - Anal pruritus [Not Recovered/Not Resolved]
  - Diarrhoea [Recovered/Resolved]
  - Vomiting [Recovered/Resolved]
